FAERS Safety Report 12214237 (Version 2)
Quarter: 2016Q2

REPORT INFORMATION
  Report Type: Spontaneous
  Country: US (occurrence: US)
  Receive Date: 20160328
  Receipt Date: 20160422
  Transmission Date: 20160815
  Serious: No
  Sender: FDA-Public Use
  Company Number: US-PFIZER INC-2016169937

PATIENT
  Age: 79 Year
  Sex: Female

DRUGS (1)
  1. HYDROXYZINE PAMOATE. [Suspect]
     Active Substance: HYDROXYZINE PAMOATE
     Dosage: UNK

REACTIONS (3)
  - Somnolence [Unknown]
  - Drug hypersensitivity [Unknown]
  - Drug intolerance [Unknown]
